FAERS Safety Report 10584071 (Version 1)
Quarter: 2014Q4

REPORT INFORMATION
  Report Type: Spontaneous
  Country: US (occurrence: None)
  Receive Date: 20141113
  Receipt Date: 20141113
  Transmission Date: 20150529
  Serious: No
  Sender: FDA-Public Use
  Company Number: None

PATIENT
  Age: 30 Year
  Sex: Male
  Weight: 322 kg

DRUGS (5)
  1. ALLOPURINOL. [Concomitant]
     Active Substance: ALLOPURINOL
  2. BENZTROPINE [Concomitant]
     Active Substance: BENZTROPINE
  3. RISPERIDONE. [Concomitant]
     Active Substance: RISPERIDONE
  4. ZETIA [Suspect]
     Active Substance: EZETIMIBE
     Indication: BLOOD CHOLESTEROL INCREASED
     Route: 048
     Dates: start: 20140929, end: 20141003
  5. MESYLATE [Concomitant]

REACTIONS (6)
  - Arthralgia [None]
  - Cough [None]
  - Back pain [None]
  - Dyspnoea [None]
  - Diarrhoea [None]
  - Pharyngeal oedema [None]

NARRATIVE: CASE EVENT DATE: 20140929
